FAERS Safety Report 16359551 (Version 1)
Quarter: 2019Q2

REPORT INFORMATION
  Report Type: Spontaneous
  Country: CH (occurrence: CH)
  Receive Date: 20190528
  Receipt Date: 20190528
  Transmission Date: 20190711
  Serious: Yes (Other)
  Sender: FDA-Public Use
  Company Number: CH-ROCHE-2324180

PATIENT
  Sex: Female

DRUGS (19)
  1. HERCEPTIN [Suspect]
     Active Substance: TRASTUZUMAB
     Indication: OFF LABEL USE
     Route: 065
     Dates: start: 201704, end: 201708
  2. TAXOL [Concomitant]
     Active Substance: PACLITAXEL
     Indication: OFF LABEL USE
  3. KADCYLA [Suspect]
     Active Substance: ADO-TRASTUZUMAB EMTANSINE
     Indication: OFF LABEL USE
  4. ADRIBLASTIN [Concomitant]
     Active Substance: DOXORUBICIN HYDROCHLORIDE
     Indication: BREAST CANCER METASTATIC
     Route: 065
  5. TAXOL [Concomitant]
     Active Substance: PACLITAXEL
     Indication: BREAST CANCER METASTATIC
     Route: 065
     Dates: start: 201102, end: 201107
  6. TAXOTERE [Concomitant]
     Active Substance: DOCETAXEL
     Indication: BREAST CANCER METASTATIC
     Route: 065
     Dates: start: 201704, end: 201708
  7. TAXOTERE [Concomitant]
     Active Substance: DOCETAXEL
     Indication: OFF LABEL USE
  8. AROMASIN [Concomitant]
     Active Substance: EXEMESTANE
     Indication: BREAST CANCER METASTATIC
     Route: 065
     Dates: start: 201709
  9. ADRIBLASTIN [Concomitant]
     Active Substance: DOXORUBICIN HYDROCHLORIDE
     Indication: OFF LABEL USE
  10. HERCEPTIN [Suspect]
     Active Substance: TRASTUZUMAB
     Route: 065
     Dates: start: 201802
  11. PERJETA [Suspect]
     Active Substance: PERTUZUMAB
     Indication: OFF LABEL USE
  12. PERJETA [Suspect]
     Active Substance: PERTUZUMAB
     Indication: BREAST CANCER METASTATIC
     Route: 042
     Dates: start: 201704, end: 201708
  13. ENDOXAN [CYCLOPHOSPHAMIDE] [Concomitant]
     Active Substance: CYCLOPHOSPHAMIDE
     Indication: BREAST CANCER METASTATIC
     Route: 042
  14. HERCEPTIN [Suspect]
     Active Substance: TRASTUZUMAB
     Indication: BREAST CANCER METASTATIC
     Route: 065
     Dates: start: 201104, end: 201204
  15. FEMARA [Concomitant]
     Active Substance: LETROZOLE
     Indication: BREAST CANCER METASTATIC
     Route: 065
     Dates: start: 201207, end: 201704
  16. KADCYLA [Suspect]
     Active Substance: ADO-TRASTUZUMAB EMTANSINE
     Indication: BREAST CANCER METASTATIC
     Route: 042
     Dates: start: 201802
  17. ENDOXAN [CYCLOPHOSPHAMIDE] [Concomitant]
     Active Substance: CYCLOPHOSPHAMIDE
     Indication: OFF LABEL USE
  18. FEMARA [Concomitant]
     Active Substance: LETROZOLE
     Indication: OFF LABEL USE
  19. AROMASIN [Concomitant]
     Active Substance: EXEMESTANE
     Indication: OFF LABEL USE

REACTIONS (3)
  - Off label use [Unknown]
  - Disease progression [Unknown]
  - Intentional product use issue [Unknown]
